FAERS Safety Report 4510133-7 (Version None)
Quarter: 2004Q4

REPORT INFORMATION
  Report Type: 
  Country: None (occurrence: None)
  Receive Date: 20041119
  Receipt Date: 20041116
  Transmission Date: 20050328
  Serious: Yes (Life-Threatening, Hospitalization)
  Sender: FDA-Public Use
  Company Number: J081-232-3583

PATIENT
  Age: 82 Year
  Sex: Female
  Weight: 47.5 kg

DRUGS (23)
  1. DONEPEZIL HCL [Suspect]
     Indication: DEMENTIA ALZHEIMER'S TYPE
     Dosage: SEE IMAGE
     Route: 048
     Dates: start: 20040414, end: 20040427
  2. DONEPEZIL HCL [Suspect]
     Indication: DEMENTIA ALZHEIMER'S TYPE
     Dosage: SEE IMAGE
     Route: 048
     Dates: start: 20040428, end: 20040525
  3. DONEPEZIL HCL [Suspect]
     Indication: DEMENTIA ALZHEIMER'S TYPE
     Dosage: SEE IMAGE
     Route: 048
     Dates: start: 20040526, end: 20040924
  4. DONEPEZIL/PLACEBO (DONEPEZIL HYDROCHLORIDE) [Suspect]
     Indication: DEMENTIA ALZHEIMER'S TYPE
     Dosage: DOUBLEBLIND, 1 IN 1 D, ORAL
     Route: 048
  5. SYMMETREL [Concomitant]
  6. SERMION (NICERGOLINE) [Concomitant]
  7. LEVOTHYROXINE SODIUM [Concomitant]
  8. GLYBURIDE [Concomitant]
  9. BASEN (VOGLIBOSE) [Concomitant]
  10. PURSENNID (SENNA LEAF) [Concomitant]
  11. MAGNESIUM OXIDE (MAGNESIUM OXIDE) [Concomitant]
  12. FIBLAST (TRAFERMIN) [Concomitant]
  13. RINDERON-VG (VALISONE-G) [Concomitant]
  14. DASEN (SERRAPEPTASE) [Concomitant]
  15. KN-3B (MAINTENANCE MEDIUM) [Concomitant]
  16. PRIMPERAN TAB [Concomitant]
  17. NICHOLIN (CITICOLINE) [Concomitant]
  18. CLINDAMYCIN HCL [Concomitant]
  19. PHYSIOLOGICAL SALINE [Concomitant]
  20. CEFMETAZON (CEFMETAZOLE SODIUM) [Concomitant]
  21. INNOLET R (INSULIN HUMAN) [Concomitant]
  22. AMINOFLUID (AMINOFLUID) [Concomitant]
  23. GLUCOLIN S [Concomitant]

REACTIONS (12)
  - ANOREXIA [None]
  - DYSPHAGIA [None]
  - GOITRE [None]
  - HORMONE LEVEL ABNORMAL [None]
  - ISCHAEMIA [None]
  - JAUNDICE [None]
  - MALNUTRITION [None]
  - MASTICATION DISORDER [None]
  - NAUSEA [None]
  - PANCREATIC CARCINOMA [None]
  - SOMNOLENCE [None]
  - VOMITING [None]
